FAERS Safety Report 24361493 (Version 1)
Quarter: 2024Q3

REPORT INFORMATION
  Report Type: Spontaneous
  Country: US (occurrence: US)
  Receive Date: 20240925
  Receipt Date: 20240925
  Transmission Date: 20241017
  Serious: No
  Sender: CELLTRION
  Company Number: US-CELLTRION INC.-2023US021258

PATIENT

DRUGS (1)
  1. INFLECTRA [Suspect]
     Active Substance: INFLIXIMAB-DYYB
     Indication: Crohn^s disease
     Dosage: 600 MG (INFLIXIMAB D1,15,43 (INITIAL) FB INFLIXIMAB (MAINTENANCE) Q56D) INTRAVENOUSLY PIGGYBACK ONCE
     Route: 042

REACTIONS (2)
  - Overdose [Unknown]
  - Intentional product use issue [Unknown]
